FAERS Safety Report 6815105-5 (Version None)
Quarter: 2010Q2

REPORT INFORMATION
  Report Type: 
  Country: None (occurrence: None)
  Receive Date: 20100630
  Receipt Date: 20100630
  Transmission Date: 20101027
  Serious: Yes (Life-Threatening, Hospitalization)
  Sender: FDA-Public Use
  Company Number: None

PATIENT
  Age: 38 Year
  Sex: Male
  Weight: 76 kg

DRUGS (1)
  1. LANTUS [Suspect]
     Indication: DIABETES MELLITUS
     Dosage: 12 UNITS UNKNOWN SQ
     Route: 058

REACTIONS (4)
  - HYPOGLYCAEMIA [None]
  - INCORRECT STORAGE OF DRUG [None]
  - LOSS OF CONSCIOUSNESS [None]
  - PARADOXICAL DRUG REACTION [None]
